FAERS Safety Report 8389557-6 (Version None)
Quarter: 2012Q2

REPORT INFORMATION
  Report Type: 
  Country: None (occurrence: None)
  Receive Date: 20120528
  Receipt Date: 20120520
  Transmission Date: 20120825
  Serious: No
  Sender: FDA-Public Use
  Company Number: US-BAYER-2012-051928

PATIENT

DRUGS (3)
  1. ACETAMINOPHEN [Concomitant]
  2. NAPROXEN SODIUM [Suspect]
     Indication: HEADACHE
  3. IBUPROFEN [Concomitant]

REACTIONS (1)
  - HEADACHE [None]
